FAERS Safety Report 17615022 (Version 2)
Quarter: 2020Q2

REPORT INFORMATION
  Report Type: Spontaneous
  Country: US (occurrence: US)
  Receive Date: 20200402
  Receipt Date: 20200513
  Transmission Date: 20200713
  Serious: Yes (Hospitalization)
  Sender: FDA-Public Use
  Company Number: US-PFIZER INC-2020133467

PATIENT
  Age: 58 Year
  Sex: Female

DRUGS (2)
  1. NAVANE [Suspect]
     Active Substance: THIOTHIXENE
     Dosage: 5 MG, 2X/DAY
     Dates: start: 1995
  2. LITHIUM. [Concomitant]
     Active Substance: LITHIUM
     Dosage: UNK
     Dates: start: 2004

REACTIONS (7)
  - Hypersensitivity [Unknown]
  - Eating disorder [Unknown]
  - Dyskinesia [Unknown]
  - Aggression [Unknown]
  - Stomatitis [Unknown]
  - Withdrawal syndrome [Not Recovered/Not Resolved]
  - Psychotic disorder [Not Recovered/Not Resolved]
